FAERS Safety Report 5119465-5 (Version None)
Quarter: 2006Q3

REPORT INFORMATION
  Report Type: 
  Country: None (occurrence: None)
  Receive Date: 20060928
  Receipt Date: 20060918
  Transmission Date: 20061208
  Serious: Yes (Death, Hospitalization)
  Sender: FDA-Public Use
  Company Number: 2005078855

PATIENT
  Age: 52 Year
  Sex: Female
  Weight: 54.4316 kg

DRUGS (9)
  1. DILANTIN [Suspect]
     Indication: CONVULSION
     Dates: start: 20030501
  2. ACTONEL [Concomitant]
  3. ATENOLOL [Concomitant]
  4. DEMADEX [Concomitant]
  5. FOLIC ACID [Concomitant]
  6. MINOXIDIL [Concomitant]
  7. NIFEDIPINE [Concomitant]
  8. AMITRIPTYLINE W/PERPHENAZINE [Concomitant]
  9. QUINACRINE (MEPACRINE HYDROCHLORIDE) [Concomitant]

REACTIONS (5)
  - DRUG HYPERSENSITIVITY [None]
  - ERYTHEMA MULTIFORME [None]
  - STEVENS-JOHNSON SYNDROME [None]
  - TOXIC EPIDERMAL NECROLYSIS [None]
  - TRACHEOSTOMY [None]
